FAERS Safety Report 7868158-X (Version None)
Quarter: 2011Q4

REPORT INFORMATION
  Report Type: 
  Country: None (occurrence: None)
  Receive Date: 20111028
  Receipt Date: 20111019
  Transmission Date: 20120403
  Serious: Yes (Other)
  Sender: FDA-Public Use
  Company Number: US-ASTRAZENECA-2011SE60558

PATIENT
  Age: 50 Year
  Sex: Male

DRUGS (5)
  1. AMITRIPTYLINE HCL [Concomitant]
     Indication: MIGRAINE PROPHYLAXIS
  2. ZOMIG [Suspect]
     Indication: MIGRAINE
     Route: 048
  3. VITAMIN D [Concomitant]
  4. NEURONTIN [Concomitant]
     Indication: MIGRAINE PROPHYLAXIS
  5. MI-OMEGA NF ETHYL ESTERS [Concomitant]

REACTIONS (26)
  - FEELING ABNORMAL [None]
  - GASTRITIS [None]
  - TOBACCO ABUSE [None]
  - HYPOAESTHESIA [None]
  - HAEMORRHOIDAL HAEMORRHAGE [None]
  - LYMPHADENOPATHY [None]
  - DEPRESSION [None]
  - GASTROOESOPHAGEAL REFLUX DISEASE [None]
  - MYALGIA [None]
  - ARTHRALGIA [None]
  - LICHEN PLANUS [None]
  - HYPERCHOLESTEROLAEMIA [None]
  - PROSTATIC SPECIFIC ANTIGEN INCREASED [None]
  - WRONG TECHNIQUE IN DRUG USAGE PROCESS [None]
  - EYE DISORDER [None]
  - PSORIASIS [None]
  - HAEMORRHOIDS [None]
  - CATARACT [None]
  - VISUAL IMPAIRMENT [None]
  - PAIN [None]
  - HEADACHE [None]
  - VITAMIN D DEFICIENCY [None]
  - MALAISE [None]
  - NOCTURIA [None]
  - URINE FLOW DECREASED [None]
  - DRUG DOSE OMISSION [None]
